FAERS Safety Report 16007811 (Version 4)
Quarter: 2020Q1

REPORT INFORMATION
  Report Type: Report from Study
  Country: IL (occurrence: IL)
  Receive Date: 20190226
  Receipt Date: 20200228
  Transmission Date: 20200409
  Serious: Yes (Hospitalization)
  Sender: FDA-Public Use
  Company Number: IL-JNJFOC-20181210162

PATIENT
  Age: 71 Year
  Sex: Male

DRUGS (5)
  1. STELARA [Suspect]
     Active Substance: USTEKINUMAB
     Indication: PSORIASIS
     Dosage: ONE WEEK 4
     Route: 058
     Dates: start: 20180819
  2. STELARA [Suspect]
     Active Substance: USTEKINUMAB
     Route: 058
     Dates: start: 201909
  3. STELARA [Suspect]
     Active Substance: USTEKINUMAB
     Route: 058
  4. STELARA [Suspect]
     Active Substance: USTEKINUMAB
     Route: 058
     Dates: start: 20190826
  5. STELARA [Suspect]
     Active Substance: USTEKINUMAB
     Route: 058
     Dates: start: 20180916

REACTIONS (6)
  - Psoriasis [Recovering/Resolving]
  - Drug ineffective [Unknown]
  - Pneumonia [Unknown]
  - Renal pain [Recovered/Resolved]
  - Product dose omission [Unknown]
  - Influenza [Unknown]

NARRATIVE: CASE EVENT DATE: 2018
